FAERS Safety Report 5759419-9 (Version None)
Quarter: 2008Q2

REPORT INFORMATION
  Report Type: 
  Country: None (occurrence: None)
  Receive Date: 20080604
  Receipt Date: 20080604
  Transmission Date: 20081010
  Serious: Yes (Disabling)
  Sender: FDA-Public Use
  Company Number: None

PATIENT
  Sex: Female

DRUGS (1)
  1. SINGULAIR [Suspect]

REACTIONS (3)
  - DYSPHONIA [None]
  - PRESYNCOPE [None]
  - VOCAL CORD DISORDER [None]
